FAERS Safety Report 12214816 (Version 2)
Quarter: 2018Q4

REPORT INFORMATION
  Report Type: Spontaneous
  Country: SE (occurrence: SE)
  Receive Date: 20160328
  Receipt Date: 20181005
  Transmission Date: 20190204
  Serious: Yes (Congenital Anomaly, Other)
  Sender: FDA-Public Use
  Company Number: SE-JNJFOC-20160316954

PATIENT

DRUGS (25)
  1. ETANERCEPT [Suspect]
     Active Substance: ETANERCEPT
     Indication: ANKYLOSING SPONDYLITIS
     Dosage: MOTHERS^ DOSING
     Route: 064
  2. ETANERCEPT [Suspect]
     Active Substance: ETANERCEPT
     Indication: PSORIATIC ARTHROPATHY
     Dosage: MOTHERS^ DOSING
     Route: 064
  3. ADALIMUMAB [Suspect]
     Active Substance: ADALIMUMAB
     Indication: RHEUMATOID ARTHRITIS
     Dosage: MOTHERS^ DOSING
     Route: 064
  4. ADALIMUMAB [Suspect]
     Active Substance: ADALIMUMAB
     Indication: PSORIASIS
     Dosage: MOTHERS^ DOSING
     Route: 064
  5. CERTOLIZUMAB [Suspect]
     Active Substance: CERTOLIZUMAB
     Indication: RHEUMATOID ARTHRITIS
     Dosage: MOTHERS^ DOSING
     Route: 064
  6. METHOTREXATE. [Concomitant]
     Active Substance: METHOTREXATE
     Route: 065
  7. ADALIMUMAB [Suspect]
     Active Substance: ADALIMUMAB
     Indication: ANKYLOSING SPONDYLITIS
     Dosage: MOTHERS^ DOSING
     Route: 064
  8. CERTOLIZUMAB [Suspect]
     Active Substance: CERTOLIZUMAB
     Indication: ANKYLOSING SPONDYLITIS
     Dosage: MOTHERS^ DOSING
     Route: 064
  9. CERTOLIZUMAB [Suspect]
     Active Substance: CERTOLIZUMAB
     Indication: PSORIATIC ARTHROPATHY
     Dosage: MOTHERS^ DOSING
     Route: 064
  10. INFLIXIMAB, RECOMBINANT [Suspect]
     Active Substance: INFLIXIMAB
     Indication: RHEUMATOID ARTHRITIS
     Dosage: MOTHERS^ DOSING
     Route: 064
  11. ETANERCEPT [Suspect]
     Active Substance: ETANERCEPT
     Indication: CROHN^S DISEASE
     Dosage: MOTHERS^ DOSING
     Route: 064
  12. ETANERCEPT [Suspect]
     Active Substance: ETANERCEPT
     Indication: COLITIS ULCERATIVE
     Dosage: MOTHERS^ DOSING
     Route: 064
  13. ADALIMUMAB [Suspect]
     Active Substance: ADALIMUMAB
     Indication: PSORIATIC ARTHROPATHY
     Dosage: MOTHERS^ DOSING
     Route: 064
  14. CERTOLIZUMAB [Suspect]
     Active Substance: CERTOLIZUMAB
     Indication: CROHN^S DISEASE
     Dosage: MOTHERS^ DOSING
     Route: 064
  15. CERTOLIZUMAB [Suspect]
     Active Substance: CERTOLIZUMAB
     Indication: PSORIASIS
     Dosage: MOTHERS^ DOSING
     Route: 064
  16. INFLIXIMAB, RECOMBINANT [Suspect]
     Active Substance: INFLIXIMAB
     Indication: PSORIATIC ARTHROPATHY
     Dosage: MOTHERS^ DOSING
     Route: 064
  17. ETANERCEPT [Suspect]
     Active Substance: ETANERCEPT
     Indication: RHEUMATOID ARTHRITIS
     Dosage: MOTHERS^ DOSING
     Route: 064
  18. ADALIMUMAB [Suspect]
     Active Substance: ADALIMUMAB
     Indication: CROHN^S DISEASE
     Dosage: MOTHERS^ DOSING
     Route: 064
  19. ADALIMUMAB [Suspect]
     Active Substance: ADALIMUMAB
     Indication: COLITIS ULCERATIVE
     Dosage: MOTHERS^ DOSING
     Route: 064
  20. CERTOLIZUMAB [Suspect]
     Active Substance: CERTOLIZUMAB
     Indication: COLITIS ULCERATIVE
     Dosage: MOTHERS^ DOSING
     Route: 064
  21. INFLIXIMAB, RECOMBINANT [Suspect]
     Active Substance: INFLIXIMAB
     Indication: COLITIS ULCERATIVE
     Dosage: MOTHERS^ DOSING
     Route: 064
  22. INFLIXIMAB, RECOMBINANT [Suspect]
     Active Substance: INFLIXIMAB
     Indication: ANKYLOSING SPONDYLITIS
     Dosage: MOTHERS^ DOSING
     Route: 064
  23. ETANERCEPT [Suspect]
     Active Substance: ETANERCEPT
     Indication: PSORIASIS
     Dosage: MOTHERS^ DOSING
     Route: 064
  24. INFLIXIMAB, RECOMBINANT [Suspect]
     Active Substance: INFLIXIMAB
     Indication: CROHN^S DISEASE
     Dosage: MOTHERS^ DOSING
     Route: 064
  25. INFLIXIMAB, RECOMBINANT [Suspect]
     Active Substance: INFLIXIMAB
     Indication: PSORIASIS
     Dosage: MOTHERS^ DOSING
     Route: 064

REACTIONS (3)
  - Congenital anomaly [Unknown]
  - Foetal exposure during pregnancy [Recovered/Resolved]
  - Premature baby [Unknown]
